FAERS Safety Report 12831791 (Version 1)
Quarter: 2016Q4

REPORT INFORMATION
  Report Type: Report from Study
  Country: US (occurrence: US)
  Receive Date: 20161010
  Receipt Date: 20161010
  Transmission Date: 20170207
  Serious: Yes (Hospitalization, Other)
  Sender: FDA-Public Use
  Company Number: US-ROCHE-1641275

PATIENT
  Age: 48 Year
  Sex: Female
  Weight: 71.7 kg

DRUGS (7)
  1. BEVACIZUMAB [Suspect]
     Active Substance: BEVACIZUMAB
     Indication: OVARIAN EPITHELIAL CANCER
     Dosage: DAY 1
     Route: 042
     Dates: start: 20150604, end: 20150604
  2. PACLITAXEL. [Suspect]
     Active Substance: PACLITAXEL
     Indication: OVARIAN CANCER
     Dosage: ON DAY 1
     Route: 042
     Dates: start: 20150512
  3. PACLITAXEL. [Suspect]
     Active Substance: PACLITAXEL
     Dosage: ON DAY 1
     Route: 042
     Dates: start: 20150604, end: 20150604
  4. CARBOPLATIN. [Suspect]
     Active Substance: CARBOPLATIN
     Indication: OVARIAN CANCER
     Dosage: AUC=6?ON DAY 1
     Route: 042
     Dates: start: 20150512
  5. CARBOPLATIN. [Suspect]
     Active Substance: CARBOPLATIN
     Dosage: AUC=6?ON DAY 1
     Route: 042
     Dates: start: 20150604, end: 20150604
  6. VELIPARIB [Suspect]
     Active Substance: VELIPARIB
     Indication: OVARIAN EPITHELIAL CANCER
     Dosage: ON DAYS 2-5
     Route: 048
     Dates: start: 20150514
  7. VELIPARIB [Suspect]
     Active Substance: VELIPARIB
     Dosage: ON DAYS 2-5
     Route: 048
     Dates: start: 20150602, end: 20150607

REACTIONS (12)
  - Vomiting [Unknown]
  - Platelet count decreased [Recovering/Resolving]
  - Platelet count decreased [Unknown]
  - Nausea [Unknown]
  - Anaemia [Unknown]
  - Neutrophil count decreased [Unknown]
  - White blood cell count decreased [Unknown]
  - Nausea [Recovered/Resolved]
  - Vomiting [Recovered/Resolved]
  - Abdominal pain [Recovering/Resolving]
  - Neutrophil count decreased [Recovering/Resolving]
  - Lymphocyte count decreased [Unknown]

NARRATIVE: CASE EVENT DATE: 20150604
